FAERS Safety Report 23669365 (Version 1)
Quarter: 2024Q1

REPORT INFORMATION
  Report Type: Spontaneous
  Country: US (occurrence: None)
  Receive Date: 20240324
  Receipt Date: 20240324
  Transmission Date: 20240410
  Serious: Yes (unspecified)
  Sender: FDA-Public Use
  Company Number: None

PATIENT
  Age: 20 Year
  Sex: Female
  Weight: 104.9 kg

DRUGS (1)
  1. ASPARLAS [Suspect]
     Active Substance: CALASPARGASE PEGOL-MKNL
     Indication: Acute lymphocytic leukaemia
     Dosage: OTHER FREQUENCY : ONE TIME;?
     Route: 042

REACTIONS (7)
  - Infusion related reaction [None]
  - Hypersensitivity [None]
  - Cough [None]
  - Throat irritation [None]
  - Nausea [None]
  - Vomiting [None]
  - Anaphylactic reaction [None]

NARRATIVE: CASE EVENT DATE: 20230605
